FAERS Safety Report 8180677-8 (Version None)
Quarter: 2012Q1

REPORT INFORMATION
  Report Type: 
  Country: None (occurrence: None)
  Receive Date: 20120302
  Receipt Date: 20120227
  Transmission Date: 20120608
  Serious: Yes (Hospitalization, Other)
  Sender: FDA-Public Use
  Company Number: US-ABBOTT-12P-163-0909557-00

PATIENT
  Sex: Female
  Weight: 78.996 kg

DRUGS (5)
  1. HUMIRA [Suspect]
     Indication: CROHN'S DISEASE
     Dates: end: 20120222
  2. HYO-MAX [Concomitant]
     Indication: PAIN
  3. LEVBID [Concomitant]
     Indication: PAIN
  4. LOMOTIL [Concomitant]
     Indication: DIARRHOEA
  5. HUMIRA [Suspect]
     Dates: start: 20120222

REACTIONS (3)
  - COLITIS [None]
  - DIARRHOEA HAEMORRHAGIC [None]
  - CROHN'S DISEASE [None]
